FAERS Safety Report 24961919 (Version 2)
Quarter: 2025Q1

REPORT INFORMATION
  Report Type: Spontaneous
  Country: ZA (occurrence: ZA)
  Receive Date: 20250212
  Receipt Date: 20250227
  Transmission Date: 20250409
  Serious: Yes (Death)
  Sender: PFIZER
  Company Number: ZA-PFIZER INC-202500033215

PATIENT
  Age: 77 Year

DRUGS (1)
  1. LORLATINIB [Suspect]
     Active Substance: LORLATINIB
     Indication: Lung neoplasm malignant
     Dosage: 100 MG, 1X/DAY
     Route: 048
     Dates: start: 20240311

REACTIONS (1)
  - Road traffic accident [Fatal]

NARRATIVE: CASE EVENT DATE: 20240923
